FAERS Safety Report 14857830 (Version 1)
Quarter: 2018Q2

REPORT INFORMATION
  Report Type: Spontaneous
  Country: US (occurrence: US)
  Receive Date: 20180508
  Receipt Date: 20180508
  Transmission Date: 20180711
  Serious: No
  Sender: FDA-Public Use
  Company Number: US-BRISTOL-MYERS SQUIBB COMPANY-BMS-2018-041649

PATIENT
  Age: 29 Year
  Sex: Female
  Weight: 61.23 kg

DRUGS (2)
  1. ZITHROMAX [Concomitant]
     Active Substance: AZITHROMYCIN DIHYDRATE
     Indication: PRODUCT USED FOR UNKNOWN INDICATION
     Dosage: UNK
     Route: 065
  2. KENALOG-40 [Suspect]
     Active Substance: TRIAMCINOLONE ACETONIDE
     Indication: UPPER RESPIRATORY TRACT INFECTION
     Dosage: 40 MG, RECEIVED 2 INJECTIONS
     Route: 058
     Dates: start: 20161202

REACTIONS (1)
  - Injection site deformation [Unknown]

NARRATIVE: CASE EVENT DATE: 20161202
